FAERS Safety Report 9369570 (Version 1)
Quarter: 2013Q2

REPORT INFORMATION
  Report Type: Spontaneous
  Country: US (occurrence: None)
  Receive Date: 20130625
  Receipt Date: 20130625
  Transmission Date: 20140414
  Serious: Yes (Hospitalization, Disabling, Other)
  Sender: FDA-Public Use
  Company Number: None

PATIENT
  Age: 85 Year
  Sex: Male
  Weight: 74.84 kg

DRUGS (14)
  1. LEVAQUIN [Suspect]
     Indication: PNEUMONIA
     Route: 048
     Dates: start: 20130522, end: 20130602
  2. TESTIM [Concomitant]
  3. NORVASC [Concomitant]
  4. PRAVACHAL [Concomitant]
  5. PRADAXA [Concomitant]
  6. LEVOTHYROXINE [Concomitant]
  7. CMBALTA [Concomitant]
  8. LASIX [Concomitant]
  9. CARVEDILOL [Concomitant]
  10. HYDROCORTISONE [Concomitant]
  11. PROSCAR [Concomitant]
  12. GABAPENTIN [Concomitant]
  13. PRILOSSEC [Concomitant]
  14. ASPIRIN [Concomitant]

REACTIONS (3)
  - Gait disturbance [None]
  - Arthralgia [None]
  - Balance disorder [None]
